FAERS Safety Report 24430924 (Version 1)
Quarter: 2024Q4

REPORT INFORMATION
  Report Type: Spontaneous
  Country: US (occurrence: US)
  Receive Date: 20241014
  Receipt Date: 20241014
  Transmission Date: 20250114
  Serious: No
  Sender: ABBVIE
  Company Number: US-ABBVIE-5953697

PATIENT
  Sex: Female

DRUGS (3)
  1. BOTOX [Suspect]
     Active Substance: ONABOTULINUMTOXINA
     Indication: Migraine
     Dosage: TIME INTERVAL: AS NECESSARY: 155 INTERNATIONAL UNIT
     Route: 065
     Dates: start: 202409, end: 202409
  2. BOTOX [Suspect]
     Active Substance: ONABOTULINUMTOXINA
     Indication: Migraine
     Dosage: TIME INTERVAL: AS NECESSARY: 155 INTERNATIONAL UNIT
     Route: 065
     Dates: start: 20240926, end: 20240926
  3. BOTOX [Suspect]
     Active Substance: ONABOTULINUMTOXINA
     Indication: Migraine
     Dosage: TIME INTERVAL: AS NECESSARY: 155 INTERNATIONAL UNIT?START DATE AND END DATE WAS 2024
     Route: 065

REACTIONS (8)
  - Limb injury [Unknown]
  - Influenza like illness [Recovered/Resolved]
  - Migraine [Recovered/Resolved]
  - Influenza like illness [Unknown]
  - Pyrexia [Recovered/Resolved]
  - Relapsing fever [Unknown]
  - Musculoskeletal discomfort [Unknown]
  - Limb discomfort [Unknown]

NARRATIVE: CASE EVENT DATE: 20240101
